FAERS Safety Report 6468692-3 (Version None)
Quarter: 2009Q4

REPORT INFORMATION
  Report Type: 
  Country: None (occurrence: None)
  Receive Date: 20091203
  Receipt Date: 20091125
  Transmission Date: 20100525
  Serious: Yes (Other)
  Sender: FDA-Public Use
  Company Number: GB-ROCHE-671304

PATIENT
  Age: 12 Year
  Sex: Male

DRUGS (1)
  1. TAMIFLU [Suspect]
     Dosage: INDICATION: FLU SYMPTOMS. THERAPY: WITHDRAWN
     Route: 065
     Dates: start: 20091109, end: 20091109

REACTIONS (6)
  - ABNORMAL BEHAVIOUR [None]
  - AGITATION [None]
  - ANXIETY [None]
  - CONFUSIONAL STATE [None]
  - DELIRIUM [None]
  - HALLUCINATION [None]
